FAERS Safety Report 9836379 (Version 2)
Quarter: 2014Q1

REPORT INFORMATION
  Report Type: Spontaneous
  Country: US (occurrence: US)
  Receive Date: 20140123
  Receipt Date: 20140311
  Transmission Date: 20141002
  Serious: No
  Sender: FDA-Public Use
  Company Number: US-BIOGENIDEC-2013BI118349

PATIENT
  Age: 46 Year
  Sex: Female

DRUGS (2)
  1. AVONEX [Suspect]
     Indication: MULTIPLE SCLEROSIS
     Route: 030
     Dates: start: 20100420
  2. AVONEX [Suspect]
     Indication: MULTIPLE SCLEROSIS
     Route: 030

REACTIONS (8)
  - Nasopharyngitis [Recovered/Resolved]
  - Episcleritis [Recovered/Resolved]
  - White blood cell count increased [Recovered/Resolved]
  - Drug dose omission [Unknown]
  - Hypoaesthesia [Not Recovered/Not Resolved]
  - Migraine [Recovered/Resolved]
  - Rhinorrhoea [Not Recovered/Not Resolved]
  - Multiple sclerosis relapse [Recovered/Resolved]
